FAERS Safety Report 11318950 (Version 1)
Quarter: 2015Q3

REPORT INFORMATION
  Report Type: Spontaneous
  Country: US (occurrence: None)
  Receive Date: 20150727
  Receipt Date: 20150727
  Transmission Date: 20151125
  Serious: Yes (Hospitalization)
  Sender: FDA-Public Use
  Company Number: None

PATIENT
  Age: 50 Year
  Sex: Female

DRUGS (1)
  1. AFINITOR [Suspect]
     Active Substance: EVEROLIMUS
     Indication: PRODUCT USED FOR UNKNOWN INDICATION
     Route: 048
     Dates: start: 20150703, end: 20150722

REACTIONS (5)
  - Oedema peripheral [None]
  - Rash papular [None]
  - Skin exfoliation [None]
  - Hypersensitivity [None]
  - Neoplasm malignant [None]

NARRATIVE: CASE EVENT DATE: 20150701
